FAERS Safety Report 4783596-X (Version None)
Quarter: 2005Q3

REPORT INFORMATION
  Report Type: 
  Country: None (occurrence: None)
  Receive Date: 20050929
  Receipt Date: 20050920
  Transmission Date: 20060218
  Serious: Yes (Hospitalization)
  Sender: FDA-Public Use
  Company Number: JP-JNJFOC-20050902302

PATIENT
  Sex: Female
  Weight: 70 kg

DRUGS (8)
  1. CRAVIT [Suspect]
     Indication: BACTERAEMIA
     Route: 048
     Dates: start: 20050827, end: 20050904
  2. CEFAZOLIN [Concomitant]
     Route: 041
     Dates: start: 20050821, end: 20050822
  3. GENTACIN [Concomitant]
     Route: 041
     Dates: start: 20050822
  4. VICCILLIN [Concomitant]
     Route: 041
  5. LOXONIN [Concomitant]
     Route: 048
  6. MUCOSTA [Concomitant]
     Route: 065
  7. TARGOCID [Concomitant]
     Route: 042
  8. TARGOCID [Concomitant]
     Indication: BACTERAEMIA
     Route: 042

REACTIONS (6)
  - ECZEMA [None]
  - FALL [None]
  - HAEMATOMA [None]
  - HEAD INJURY [None]
  - LOSS OF CONSCIOUSNESS [None]
  - SYNCOPE [None]
